FAERS Safety Report 9404849 (Version 1)
Quarter: 2013Q3

REPORT INFORMATION
  Report Type: Spontaneous
  Country: US (occurrence: None)
  Receive Date: 20130716
  Receipt Date: 20130716
  Transmission Date: 20140515
  Serious: Yes (Disabling)
  Sender: FDA-Public Use
  Company Number: None

PATIENT
  Age: 88 Year
  Sex: Male

DRUGS (13)
  1. FLOMAX [Suspect]
     Indication: PROSTATOMEGALY
     Dosage: 1 PILL, 1 AT BEDTIME BY MOUTH.
     Route: 048
     Dates: start: 20101012, end: 20130501
  2. VITAMINS [Concomitant]
  3. GARLIO CAPSULES [Concomitant]
  4. COENZYMEQ10 [Concomitant]
  5. VITAMIN D [Concomitant]
  6. CALCIUM [Concomitant]
  7. MAGNESIUM [Concomitant]
  8. ZINC [Concomitant]
  9. OMEGA3 [Concomitant]
  10. K2 [Concomitant]
  11. VITAMIN C [Concomitant]
  12. LOEILHIN GRANULES [Concomitant]
  13. MULTIPLE VITAMINS [Concomitant]

REACTIONS (1)
  - Arthropathy [None]
